FAERS Safety Report 17326032 (Version 3)
Quarter: 2020Q1

REPORT INFORMATION
  Report Type: Spontaneous
  Country: US (occurrence: US)
  Receive Date: 20200127
  Receipt Date: 20200320
  Transmission Date: 20200409
  Serious: No
  Sender: FDA-Public Use
  Company Number: US-VERTEX PHARMACEUTICALS-2020-001090

PATIENT
  Sex: Female

DRUGS (1)
  1. TRIKAFTA [Suspect]
     Active Substance: ELEXACAFTOR\IVACAFTOR\TEZACAFTOR
     Indication: CYSTIC FIBROSIS
     Dosage: 2 ORANGE TABLETS IN THE AM AND 1 BLUE TABLET IN THE PM
     Route: 048
     Dates: start: 20191227, end: 20200115

REACTIONS (4)
  - Cough [Unknown]
  - Diarrhoea [Unknown]
  - Migraine [Unknown]
  - Vomiting [Unknown]
